FAERS Safety Report 17857374 (Version 2)
Quarter: 2020Q4

REPORT INFORMATION
  Report Type: Spontaneous
  Country: US (occurrence: US)
  Receive Date: 20200603
  Receipt Date: 20201126
  Transmission Date: 20210113
  Serious: No
  Sender: FDA-Public Use
  Company Number: US-TEVA-2020-US-1243594

PATIENT

DRUGS (1)
  1. HYDROCODONE-LBUPROFEN [Suspect]
     Active Substance: HYDROCODONE\IBUPROFEN
     Route: 065
     Dates: start: 2009

REACTIONS (12)
  - Grip strength decreased [Not Recovered/Not Resolved]
  - Dizziness [Not Recovered/Not Resolved]
  - Pain in extremity [Not Recovered/Not Resolved]
  - Mobility decreased [Unknown]
  - Tooth disorder [Unknown]
  - Somnolence [Not Recovered/Not Resolved]
  - Eye disorder [Unknown]
  - General physical health deterioration [Unknown]
  - Headache [Not Recovered/Not Resolved]
  - Muscular weakness [Not Recovered/Not Resolved]
  - Pain [Not Recovered/Not Resolved]
  - Facial pain [Not Recovered/Not Resolved]
